FAERS Safety Report 13234415 (Version 2)
Quarter: 2017Q4

REPORT INFORMATION
  Report Type: Spontaneous
  Country: IN (occurrence: IN)
  Receive Date: 20170215
  Receipt Date: 20171103
  Transmission Date: 20180320
  Serious: Yes (Congenital Anomaly, Other)
  Sender: FDA-Public Use
  Company Number: IN-LUPIN PHARMACEUTICALS INC.-2017-00644

PATIENT
  Sex: Female

DRUGS (2)
  1. LEVETIRACETAM. [Suspect]
     Active Substance: LEVETIRACETAM
     Indication: EPILEPSY
     Dosage: 1000 MG, QD
     Route: 064
  2. LEVETIRACETAM. [Suspect]
     Active Substance: LEVETIRACETAM
     Dosage: 1250 MG, QD
     Route: 064

REACTIONS (6)
  - Cleft lip [Unknown]
  - Foetal exposure during pregnancy [Unknown]
  - Spina bifida [Unknown]
  - Dysmorphism [Unknown]
  - Accessory auricle [Unknown]
  - Teratogenicity [Unknown]
